FAERS Safety Report 9837319 (Version 1)
Quarter: 2014Q1

REPORT INFORMATION
  Report Type: Spontaneous
  Country: US (occurrence: US)
  Receive Date: 20140123
  Receipt Date: 20140123
  Transmission Date: 20141002
  Serious: No
  Sender: FDA-Public Use
  Company Number: US-PFIZER INC-2014019080

PATIENT
  Age: 51 Year
  Sex: Female
  Weight: 69.84 kg

DRUGS (2)
  1. LYRICA [Suspect]
     Indication: PAIN
     Dosage: 100 MG, 3X/DAY
     Dates: start: 201112
  2. TRAMADOL [Concomitant]
     Dosage: 40 MG, 4X/DAY

REACTIONS (1)
  - Drug ineffective [Unknown]
